FAERS Safety Report 17988710 (Version 1)
Quarter: 2020Q3

REPORT INFORMATION
  Report Type: Spontaneous
  Country: JP (occurrence: JP)
  Receive Date: 20200707
  Receipt Date: 20200707
  Transmission Date: 20201103
  Serious: Yes (Death, Other)
  Sender: FDA-Public Use
  Company Number: JP-BIOCRYST PHARMACEUTICALS, INC.-2020BCR00059

PATIENT
  Age: 76 Year
  Sex: Male
  Weight: 55.8 kg

DRUGS (16)
  1. TELMISARTAN. [Concomitant]
     Active Substance: TELMISARTAN
     Dosage: 20 MG, 1X/DAY
     Route: 065
  2. CEFOTAXIME [Concomitant]
     Active Substance: CEFOTAXIME SODIUM
     Indication: PNEUMONIA INFLUENZAL
     Dosage: 4.0 G, 1X/DAY
     Route: 065
     Dates: start: 20180217
  3. RAPIACTA [Suspect]
     Active Substance: PERAMIVIR
     Indication: INFLUENZA
     Dosage: 200 MG ^DR^
     Route: 065
     Dates: start: 20180214
  4. CLOPERASTINE HYDROCHLORIDE [Concomitant]
     Active Substance: CLOPERASTINE HYDROCHLORIDE
     Indication: INFLUENZA
     Dosage: 10 MG, 1X/DAY
     Route: 065
     Dates: start: 20180214
  5. ACETAMINOPHEN. [Concomitant]
     Active Substance: ACETAMINOPHEN
     Dosage: UNK
     Route: 065
     Dates: start: 20180215
  6. KETOPROFEN. [Concomitant]
     Active Substance: KETOPROFEN
     Dosage: 200 MG, 1X/DAY
     Route: 065
  7. LASIX [Concomitant]
     Active Substance: FUROSEMIDE
     Indication: ANURIA
     Dosage: 20 MG, 1X/DAY
     Route: 042
     Dates: start: 20180218
  8. RAPIACTA [Suspect]
     Active Substance: PERAMIVIR
     Indication: PNEUMONIA INFLUENZAL
     Dosage: 600 MG ^DR^
     Route: 065
     Dates: start: 20180217
  9. GOSERELIN ACETATE [Concomitant]
     Active Substance: GOSERELIN ACETATE
     Indication: PROSTATE CANCER
     Route: 065
  10. LASIX [Concomitant]
     Active Substance: FUROSEMIDE
     Dosage: 120 MG, 1X/DAY
     Route: 042
     Dates: start: 20180219
  11. CLARITHROMYCIN. [Concomitant]
     Active Substance: CLARITHROMYCIN
     Indication: INFLUENZA
     Dosage: 400 MG, 1X/DAY
     Route: 065
     Dates: start: 20180214
  12. ISOTONIC SODIUM CHLORIDE SOLUTION [Concomitant]
     Active Substance: SODIUM CHLORIDE
     Indication: RENAL DISORDER
     Dosage: 1000 ML, 1X/DAY
     Route: 065
     Dates: start: 20180217
  13. ACETATED RINGER^S SOLUTION WITH GLUCOSE [Concomitant]
     Indication: RENAL DISORDER
     Dosage: 1440 ML, 1X/DAY
     Route: 065
     Dates: start: 20180217
  14. BICALUTAMIDE. [Concomitant]
     Active Substance: BICALUTAMIDE
     Indication: PROSTATE CANCER
     Dosage: 80 MG, 1X/DAY
     Route: 065
  15. NIFEDIPINE. [Concomitant]
     Active Substance: NIFEDIPINE
     Dosage: 30 MG, 1X/DAY
     Route: 065
  16. ROSUVASTATIN CALCIUM. [Concomitant]
     Active Substance: ROSUVASTATIN CALCIUM
     Dosage: 2.5 MG, 1X/DAY
     Route: 065

REACTIONS (2)
  - Prescribed overdose [Not Recovered/Not Resolved]
  - Colitis ischaemic [Not Recovered/Not Resolved]

NARRATIVE: CASE EVENT DATE: 201802
